FAERS Safety Report 13369120 (Version 1)
Quarter: 2017Q1

REPORT INFORMATION
  Report Type: Spontaneous
  Country: US (occurrence: US)
  Receive Date: 20170324
  Receipt Date: 20170324
  Transmission Date: 20170429
  Serious: No
  Sender: FDA-Public Use
  Company Number: US-ELI_LILLY_AND_COMPANY-US201608004438

PATIENT
  Sex: Female

DRUGS (1)
  1. CYMBALTA [Suspect]
     Active Substance: DULOXETINE HYDROCHLORIDE
     Indication: PSYCHOTIC DISORDER
     Dosage: 60 MG, QD
     Route: 048

REACTIONS (13)
  - Dysphoria [Unknown]
  - Paraesthesia [Unknown]
  - Hypoaesthesia [Unknown]
  - Affect lability [Unknown]
  - Confusional state [Unknown]
  - Irritability [Unknown]
  - Anxiety [Unknown]
  - Sensory disturbance [Unknown]
  - Agitation [Unknown]
  - Intentional product misuse [Unknown]
  - Off label use [Unknown]
  - Dizziness [Unknown]
  - Drug withdrawal syndrome [Unknown]
